FAERS Safety Report 15937401 (Version 3)
Quarter: 2020Q1

REPORT INFORMATION
  Report Type: Spontaneous
  Country: US (occurrence: US)
  Receive Date: 20190208
  Receipt Date: 20200311
  Transmission Date: 20200409
  Serious: Yes (Other)
  Sender: FDA-Public Use
  Company Number: US-ASTRAZENECA-2018SF66249

PATIENT
  Sex: Male

DRUGS (20)
  1. PEPCID AC [Concomitant]
     Active Substance: FAMOTIDINE
  2. TAGAMET [Concomitant]
     Active Substance: CIMETIDINE
  3. LISINOPRIL. [Concomitant]
     Active Substance: LISINOPRIL
  4. NEXIUM [Suspect]
     Active Substance: ESOMEPRAZOLE MAGNESIUM
     Route: 048
     Dates: start: 20050101
  5. NEXIUM [Suspect]
     Active Substance: ESOMEPRAZOLE MAGNESIUM
     Route: 048
     Dates: start: 20070101, end: 20180730
  6. NEXIUM [Suspect]
     Active Substance: ESOMEPRAZOLE MAGNESIUM
     Route: 048
     Dates: start: 20151102
  7. ATENOLOL. [Concomitant]
     Active Substance: ATENOLOL
  8. NEXIUM 24HR [Suspect]
     Active Substance: ESOMEPRAZOLE MAGNESIUM
     Route: 048
     Dates: start: 20070101, end: 20180730
  9. ZANTAC [Concomitant]
     Active Substance: RANITIDINE HYDROCHLORIDE
  10. METFORMIN [Concomitant]
     Active Substance: METFORMIN HYDROCHLORIDE
  11. GLIPIZIDE. [Concomitant]
     Active Substance: GLIPIZIDE
  12. CYCLOBENZAPRINE. [Concomitant]
     Active Substance: CYCLOBENZAPRINE
  13. HYDRALAZINE [Concomitant]
     Active Substance: HYDRALAZINE HYDROCHLORIDE
  14. NAPROXEN. [Concomitant]
     Active Substance: NAPROXEN
  15. NEXIUM 24HR [Suspect]
     Active Substance: ESOMEPRAZOLE MAGNESIUM
     Route: 048
     Dates: start: 20050101
  16. NEXIUM [Suspect]
     Active Substance: ESOMEPRAZOLE MAGNESIUM
     Route: 048
     Dates: start: 20150925
  17. PRILOSEC OTC [Suspect]
     Active Substance: OMEPRAZOLE MAGNESIUM
     Route: 048
  18. BENICAR [Concomitant]
     Active Substance: OLMESARTAN MEDOXOMIL
  19. DOXYCYCLINE. [Concomitant]
     Active Substance: DOXYCYCLINE
  20. LEVEMIR [Concomitant]
     Active Substance: INSULIN DETEMIR

REACTIONS (4)
  - Renal failure [Unknown]
  - Chronic kidney disease [Unknown]
  - Rebound acid hypersecretion [Unknown]
  - Renal injury [Unknown]
